FAERS Safety Report 9915911 (Version 2)
Quarter: 2014Q1

REPORT INFORMATION
  Report Type: Spontaneous
  Country: ES (occurrence: ES)
  Receive Date: 20140221
  Receipt Date: 20140221
  Transmission Date: 20141002
  Serious: Yes (Hospitalization, Other)
  Sender: FDA-Public Use
  Company Number: ES-TEVA-403871ISR

PATIENT
  Age: 42 Year
  Sex: Female

DRUGS (5)
  1. LINEZOLID TEVA 600 MG COMPRIMIDOS [Suspect]
     Dates: start: 20121213, end: 201304
  2. CICLOSERINA [Concomitant]
     Dates: start: 20121213
  3. LEVOFLOXACIN [Concomitant]
     Dates: start: 20121213
  4. BENADON 300 MG COMPRIMIDOS [Concomitant]
     Dates: start: 20121213
  5. MYAMBUTOL 400 MG [Concomitant]
     Dates: start: 20121213

REACTIONS (11)
  - Anaemia [Recovered/Resolved]
  - Abdominal pain upper [Unknown]
  - Dyspnoea [Unknown]
  - Muscular weakness [Unknown]
  - Asthenia [Unknown]
  - Decreased appetite [Unknown]
  - Dysgeusia [Unknown]
  - Nausea [Unknown]
  - Vomiting [Unknown]
  - Anisocytosis [Unknown]
  - Neuropathy peripheral [Unknown]
